FAERS Safety Report 6206175-6 (Version None)
Quarter: 2009Q2

REPORT INFORMATION
  Report Type: 
  Country: None (occurrence: None)
  Receive Date: 20090528
  Receipt Date: 20080710
  Transmission Date: 20091009
  Serious: No
  Sender: FDA-Public Use
  Company Number: US-KINGPHARMUSA00001-K200800810

PATIENT
  Sex: Male

DRUGS (27)
  1. AVINZA [Suspect]
     Indication: BACK PAIN
     Dosage: 120 MG, QD
     Route: 048
     Dates: start: 20030606, end: 20030801
  2. AVINZA [Suspect]
     Dosage: 120 MG, BID
     Route: 048
     Dates: start: 20030802, end: 20050729
  3. SKELAXIN [Concomitant]
     Dosage: UNK, UNK
     Dates: start: 20030129, end: 20040301
  4. ACTIQ [Suspect]
     Indication: BACK PAIN
     Dosage: 600 MG, BID
     Route: 002
     Dates: start: 20030606, end: 20030702
  5. ACTIQ [Suspect]
     Dosage: 1200 MG, BID
     Route: 002
     Dates: start: 20030703, end: 20030801
  6. ACTIQ [Suspect]
     Dosage: 1200 UG, TID
     Route: 002
     Dates: start: 20030802, end: 20040301
  7. ACTIQ [Suspect]
     Dosage: 800UG TID/1600 QID PRN DAILY
     Route: 002
     Dates: start: 20040301, end: 20040401
  8. ACTIQ [Suspect]
     Dosage: 1600 UG, QID
     Route: 002
     Dates: start: 20040401, end: 20080729
  9. ACTIQ [Suspect]
     Dosage: 1600 UG 12-60 LOZENGES EVERY 30 DAYS
     Route: 002
     Dates: start: 20050826
  10. NORCO [Suspect]
     Indication: PAIN
     Dosage: 10 MG/325 MG DF, TID
     Route: 048
     Dates: start: 20030411, end: 20030509
  11. NORCO [Suspect]
     Dosage: 10 MG/325 MG DF, QID
     Route: 048
     Dates: start: 20030510, end: 20050401
  12. MORPHINE SULFATE [Concomitant]
     Dates: start: 20050401, end: 20050527
  13. MORPHINE SULFATE [Concomitant]
     Dates: start: 20050528, end: 20050729
  14. MORPHINE SULFATE [Concomitant]
     Dates: start: 20050826, end: 20060310
  15. MORPHINE SULFATE [Concomitant]
     Dates: start: 20060311
  16. METHADONE [Concomitant]
     Dates: start: 20050729, end: 20050826
  17. METHADONE [Concomitant]
     Dates: start: 20050827
  18. DURAGESIC-100 [Concomitant]
     Dates: end: 20020314
  19. DURAGESIC-100 [Concomitant]
     Dates: start: 20020315, end: 20030606
  20. OXYCONTIN [Concomitant]
     Dates: start: 20030129, end: 20030212
  21. VALIUM [Concomitant]
     Dates: start: 20040402, end: 20050826
  22. VALIUM [Concomitant]
     Dates: start: 20050827
  23. CYMBALTA [Concomitant]
     Dates: start: 20041015, end: 20041021
  24. CYMBALTA [Concomitant]
     Dates: start: 20041022, end: 20041101
  25. CYMBALTA [Concomitant]
     Dates: start: 20060310
  26. LEXAPRO [Concomitant]
     Dates: end: 20020314
  27. LEXAPRO [Concomitant]
     Dates: start: 20020315, end: 20040206

REACTIONS (5)
  - CONSTIPATION [None]
  - DENTAL CARIES [None]
  - DRUG ABUSE [None]
  - SEXUAL DYSFUNCTION [None]
  - TOOTH FRACTURE [None]
